FAERS Safety Report 8078200-1 (Version None)
Quarter: 2012Q1

REPORT INFORMATION
  Report Type: 
  Country: None (occurrence: None)
  Receive Date: 20120127
  Receipt Date: 20110203
  Transmission Date: 20120608
  Serious: No
  Sender: FDA-Public Use
  Company Number: US-ABBOTT-10P-163-0692452-00

PATIENT
  Sex: Female
  Weight: 56 kg

DRUGS (9)
  1. HUMIRA [Suspect]
     Indication: CROHN'S DISEASE
     Dates: start: 20100910
  2. CALCIUM W/MAGNESIUM/VITAMIN D [Concomitant]
     Indication: PRODUCT USED FOR UNKNOWN INDICATION
  3. OREGNO OIL [Concomitant]
     Indication: ORAL HERPES
  4. PREDNISONE [Concomitant]
     Indication: PRODUCT USED FOR UNKNOWN INDICATION
  5. MULTI-VITAMIN [Concomitant]
     Indication: PRODUCT USED FOR UNKNOWN INDICATION
  6. MERCAPTOPURINE [Concomitant]
     Indication: CROHN'S DISEASE
     Dosage: AT NIGHT
  7. FISH OIL [Concomitant]
     Indication: PRODUCT USED FOR UNKNOWN INDICATION
  8. PROGESTERONE [Concomitant]
     Indication: HORMONE LEVEL ABNORMAL
     Dosage: 1/8 TSP, 2 IN DAY FOR 14 DAYS Q MONTH
  9. LYSINE [Concomitant]
     Indication: ORAL HERPES

REACTIONS (3)
  - DYSURIA [None]
  - ORAL HERPES [None]
  - URINARY TRACT INFECTION [None]
